FAERS Safety Report 11911434 (Version 3)
Quarter: 2016Q1

REPORT INFORMATION
  Report Type: Spontaneous
  Country: BR (occurrence: BR)
  Receive Date: 20160112
  Receipt Date: 20160316
  Transmission Date: 20160526
  Serious: Yes (Other)
  Sender: FDA-Public Use
  Company Number: BR-PFIZER INC-2015476978

PATIENT
  Age: 62 Year
  Sex: Female

DRUGS (16)
  1. LYRICA [Suspect]
     Active Substance: PREGABALIN
     Indication: OSTEOARTHRITIS
     Dosage: 75 MG, 3X/DAY (EVERY 8 HOURS)
     Dates: start: 20151219, end: 20151227
  2. OSTEOFORM [Concomitant]
     Dosage: ONCE WEEKLY
     Dates: end: 201602
  3. HYDROCHLOROTHIAZIDE. [Concomitant]
     Active Substance: HYDROCHLOROTHIAZIDE
     Indication: BLOOD PRESSURE ABNORMAL
     Dosage: 25 MG, UNK
  4. FAMOTIDINE. [Concomitant]
     Active Substance: FAMOTIDINE
     Indication: BLOOD PRESSURE ABNORMAL
  5. SPIRONOLACTONE. [Concomitant]
     Active Substance: SPIRONOLACTONE
     Indication: BLOOD PRESSURE MEASUREMENT
     Dosage: 25 MG, UNK
  6. LYRICA [Suspect]
     Active Substance: PREGABALIN
     Indication: EXOSTOSIS
  7. LYRICA [Suspect]
     Active Substance: PREGABALIN
     Indication: INTERVERTEBRAL DISC PROTRUSION
  8. LYRICA [Suspect]
     Active Substance: PREGABALIN
     Indication: SCIATICA
  9. ATENOLOL. [Concomitant]
     Active Substance: ATENOLOL
     Indication: BLOOD PRESSURE ABNORMAL
     Dosage: 12.5 MG, UNK
  10. LYRICA [Suspect]
     Active Substance: PREGABALIN
     Indication: SPINAL DISORDER
  11. AMLODIPINE [Concomitant]
     Active Substance: AMLODIPINE BESYLATE
     Indication: BLOOD PRESSURE ABNORMAL
     Dosage: 5 MG, UNK
  12. MIOSAN [Suspect]
     Active Substance: CYCLOBENZAPRINE
     Dosage: UNK
     Dates: start: 20151222
  13. ATENOLOL. [Concomitant]
     Active Substance: ATENOLOL
     Dosage: 37.5 MG, UNK
     Dates: start: 201505
  14. LYRICA [Suspect]
     Active Substance: PREGABALIN
     Indication: PAIN
  15. PROSSO [Concomitant]
     Dosage: TOOK IN LUNCH TIME
     Route: 048
     Dates: end: 201602
  16. LOSARTAN. [Concomitant]
     Active Substance: LOSARTAN
     Indication: BLOOD PRESSURE MEASUREMENT
     Dosage: 50 MG, UNK

REACTIONS (35)
  - Pain [Recovering/Resolving]
  - Joint range of motion decreased [Recovered/Resolved]
  - Burning sensation [Recovered/Resolved]
  - Eating disorder [Recovered/Resolved]
  - Condition aggravated [Recovering/Resolving]
  - Decreased appetite [Unknown]
  - Drug ineffective [Not Recovered/Not Resolved]
  - Urinary tract disorder [Recovered/Resolved]
  - Dizziness [Unknown]
  - Fibromyalgia [Unknown]
  - Head discomfort [Unknown]
  - Joint swelling [Recovering/Resolving]
  - Movement disorder [Recovered/Resolved]
  - Pain in extremity [Recovering/Resolving]
  - Retching [Unknown]
  - Weight decreased [Unknown]
  - Blood pressure increased [Recovered/Resolved]
  - Activities of daily living impaired [Recovering/Resolving]
  - Urinary retention [Unknown]
  - Peripheral swelling [Recovered/Resolved]
  - Feeling of despair [Recovered/Resolved]
  - Memory impairment [Recovered/Resolved]
  - Crying [Recovered/Resolved]
  - Gait disturbance [Unknown]
  - Insomnia [Unknown]
  - Pyrexia [Unknown]
  - Fluid retention [Recovered/Resolved]
  - Muscular weakness [Unknown]
  - Fatigue [Unknown]
  - Decreased activity [Recovering/Resolving]
  - Musculoskeletal stiffness [Recovered/Resolved]
  - Exostosis [Unknown]
  - Bursitis [Unknown]
  - Neck pain [Unknown]
  - Limb discomfort [Recovered/Resolved]

NARRATIVE: CASE EVENT DATE: 201512
